FAERS Safety Report 10171594 (Version 2)
Quarter: 2014Q3

REPORT INFORMATION
  Report Type: Spontaneous
  Country: US (occurrence: US)
  Receive Date: 20140514
  Receipt Date: 20140813
  Transmission Date: 20150326
  Serious: Yes (Death, Other)
  Sender: FDA-Public Use
  Company Number: US-GILEAD-2014-0102181

PATIENT
  Age: 64 Year
  Sex: Female

DRUGS (6)
  1. LETAIRIS [Suspect]
     Active Substance: AMBRISENTAN
     Indication: PULMONARY HYPERTENSION
     Dosage: 10 MG, QD
     Route: 065
     Dates: start: 20100205, end: 20140509
  2. LETAIRIS [Suspect]
     Active Substance: AMBRISENTAN
     Indication: SYSTEMIC LUPUS ERYTHEMATOSUS
  3. REMODULIN [Concomitant]
     Active Substance: TREPROSTINIL
  4. LETAIRIS [Suspect]
     Active Substance: AMBRISENTAN
     Indication: SYSTEMIC LUPUS ERYTHEMATOSUS
  5. ADCIRCA [Concomitant]
     Active Substance: TADALAFIL
  6. LETAIRIS [Suspect]
     Active Substance: AMBRISENTAN
     Indication: COLLAGEN-VASCULAR DISEASE

REACTIONS (1)
  - Cardiac arrest [Fatal]
